FAERS Safety Report 4394802-8 (Version None)
Quarter: 2004Q2

REPORT INFORMATION
  Report Type: 
  Country: None (occurrence: None)
  Receive Date: 20040621
  Receipt Date: 20031024
  Transmission Date: 20050107
  Serious: Yes (Other)
  Sender: FDA-Public Use
  Company Number: USA-2003-0010587

PATIENT
  Age: 28 Year
  Sex: Male
  Weight: 111.6 kg

DRUGS (19)
  1. OXYCONTIN [Suspect]
     Indication: PAIN
     Dosage: 160 MG, TID ORAL
     Route: 048
  2. OXYCODONE HCL [Concomitant]
  3. MORPHINE SULFATE [Concomitant]
  4. OXYFAST CONCENTRATE [Concomitant]
  5. NEURONTIN [Concomitant]
  6. NORCO [Concomitant]
  7. ELAVIL [Concomitant]
  8. CELEXA [Concomitant]
  9. ZOLOFT [Concomitant]
  10. ZANAFLEX [Concomitant]
  11. ZONEGRAN [Concomitant]
  12. TOPAMAX [Concomitant]
  13. BEXTRA [Concomitant]
  14. LORTAB [Concomitant]
  15. WELLBUTRIN SR [Concomitant]
  16. XANAX [Concomitant]
  17. VICOPROFEN [Concomitant]
  18. PAMELOR [Concomitant]
  19. SONATA [Concomitant]

REACTIONS (16)
  - ANXIETY [None]
  - CONSTIPATION [None]
  - DEPRESSION [None]
  - DRUG ABUSER [None]
  - DRUG DEPENDENCE [None]
  - DRUG INEFFECTIVE [None]
  - EMOTIONAL DISTRESS [None]
  - FALL [None]
  - HAEMATURIA [None]
  - HYPOAESTHESIA [None]
  - MUSCLE SPASMS [None]
  - PAIN [None]
  - PYELONEPHRITIS [None]
  - SEDATION [None]
  - SEXUAL DYSFUNCTION [None]
  - URINARY TRACT INFECTION [None]
